FAERS Safety Report 6803728-9 (Version None)
Quarter: 2010Q2

REPORT INFORMATION
  Report Type: 
  Country: None (occurrence: None)
  Receive Date: 20100628
  Receipt Date: 20100618
  Transmission Date: 20101027
  Serious: Yes (Other)
  Sender: FDA-Public Use
  Company Number: FR-ELI_LILLY_AND_COMPANY-FR201006005242

PATIENT
  Sex: Male

DRUGS (1)
  1. EXENATIDE [Suspect]
     Dosage: UNK, UNKNOWN
     Route: 058

REACTIONS (1)
  - SPLENOMEGALY [None]
